FAERS Safety Report 9144154 (Version 1)
Quarter: 2013Q1

REPORT INFORMATION
  Report Type: Spontaneous
  Country: CN (occurrence: CN)
  Receive Date: 20130306
  Receipt Date: 20130306
  Transmission Date: 20140127
  Serious: Yes (Other)
  Sender: FDA-Public Use
  Company Number: CN-ROCHE-1194024

PATIENT
  Age: 41 Year
  Sex: Female

DRUGS (4)
  1. PEG-INTERFERON ALFA 2A [Suspect]
     Indication: CHRONIC HEPATITIS C
     Route: 058
  2. PEG-INTERFERON ALFA 2A [Suspect]
     Dosage: DOSE REDUCED TO HALF
     Route: 058
  3. RIBAVIRIN [Suspect]
     Indication: CHRONIC HEPATITIS C
     Route: 048
  4. PEGINTERFERON ALFA-2B [Suspect]
     Indication: CHRONIC HEPATITIS C
     Route: 058

REACTIONS (3)
  - Deafness neurosensory [Recovered/Resolved]
  - Tinnitus [Recovered/Resolved]
  - White blood cell count decreased [Unknown]
